FAERS Safety Report 17533993 (Version 1)
Quarter: 2020Q1

REPORT INFORMATION
  Report Type: Report from Study
  Country: None (occurrence: US)
  Receive Date: 20200312
  Receipt Date: 20200312
  Transmission Date: 20200409
  Serious: Yes (Hospitalization)
  Sender: FDA-Public Use
  Company Number: US-ABBVIE-17P-163-2127644-00

PATIENT
  Sex: Male
  Weight: 99.88 kg

DRUGS (6)
  1. DEPAKOTE ER [Suspect]
     Active Substance: DIVALPROEX SODIUM
     Route: 048
     Dates: start: 2019
  2. LEVOTHYROXINE. [Concomitant]
     Active Substance: LEVOTHYROXINE
     Indication: HYPOTHYROIDISM
  3. SODIUM VALPROATE [Suspect]
     Active Substance: VALPROATE SODIUM
     Indication: PRODUCT USED FOR UNKNOWN INDICATION
     Route: 048
  4. PERPHENAZINE. [Concomitant]
     Active Substance: PERPHENAZINE
     Indication: MENTAL DISORDER
  5. DEPAKOTE ER [Suspect]
     Active Substance: DIVALPROEX SODIUM
     Indication: MANIA
     Route: 048
     Dates: start: 2019, end: 2019
  6. DEPAKOTE ER [Suspect]
     Active Substance: DIVALPROEX SODIUM
     Indication: BIPOLAR DISORDER
     Route: 048
     Dates: start: 2011

REACTIONS (7)
  - Insomnia [Recovered/Resolved]
  - Mania [Recovered/Resolved]
  - Drug level decreased [Not Recovered/Not Resolved]
  - Drug ineffective [Unknown]
  - Head discomfort [Not Recovered/Not Resolved]
  - Drug intolerance [Unknown]
  - Product residue present [Not Recovered/Not Resolved]

NARRATIVE: CASE EVENT DATE: 2016
